FAERS Safety Report 8035599-X (Version None)
Quarter: 2012Q1

REPORT INFORMATION
  Report Type: 
  Country: None (occurrence: None)
  Receive Date: 20120111
  Receipt Date: 20111230
  Transmission Date: 20120608
  Serious: Yes (Hospitalization, Other)
  Sender: FDA-Public Use
  Company Number: US-ELI_LILLY_AND_COMPANY-US201101007575

PATIENT
  Sex: Female
  Weight: 50 kg

DRUGS (8)
  1. FORTEO [Suspect]
     Dosage: 20 UG, QD
  2. FORTEO [Suspect]
     Dosage: 20 UG, QD
  3. FORTEO [Suspect]
     Dosage: 20 UG, QD
  4. FORTEO [Suspect]
     Dosage: 20 UG, QD
  5. FORTEO [Suspect]
     Indication: OSTEOPOROSIS
     Dosage: 20 UG, DAILY (1/D)
     Dates: start: 20100406
  6. CALCIUM ACETATE [Concomitant]
  7. VITAMIN D [Concomitant]
  8. OXYGEN [Concomitant]

REACTIONS (6)
  - FEMUR FRACTURE [None]
  - HIP FRACTURE [None]
  - BONE DENSITY DECREASED [None]
  - FALL [None]
  - FEAR [None]
  - INJECTION SITE HAEMATOMA [None]
